FAERS Safety Report 6527204-6 (Version None)
Quarter: 2010Q1

REPORT INFORMATION
  Report Type: 
  Country: None (occurrence: None)
  Receive Date: 20100104
  Receipt Date: 20100104
  Transmission Date: 20100710
  Serious: No
  Sender: FDA-Public Use
  Company Number: None

PATIENT
  Age: 40 Year
  Sex: Male
  Weight: 89.8122 kg

DRUGS (4)
  1. MYCOSTATIN [Suspect]
     Dosage: COMPRESS TWICE DAILY TOP
     Route: 061
     Dates: start: 20070327, end: 20070327
  2. REPITELIN -ESSENTIAL FATTY ACIDS + SOY LECITHIN + VITAMINS [Concomitant]
  3. ALLANTOIN [Concomitant]
  4. CICALFATE -MICRONIZED SUCRALFATE- [Concomitant]

REACTIONS (6)
  - APPLICATION SITE ATROPHY [None]
  - APPLICATION SITE BURN [None]
  - APPLICATION SITE ERYTHEMA [None]
  - APPLICATION SITE ULCER [None]
  - CAUSTIC INJURY [None]
  - INCORRECT ROUTE OF DRUG ADMINISTRATION [None]
